FAERS Safety Report 6964456-2 (Version None)
Quarter: 2010Q3

REPORT INFORMATION
  Report Type: 
  Country: None (occurrence: None)
  Receive Date: 20100903
  Receipt Date: 20100825
  Transmission Date: 20110219
  Serious: Yes (Hospitalization, Congenital Anomaly, Other)
  Sender: FDA-Public Use
  Company Number: NO-PFIZER INC-2006104189

PATIENT
  Sex: Male

DRUGS (2)
  1. NEURONTIN [Suspect]
     Dosage: UNK
     Route: 064
  2. TEGRETOL [Concomitant]
     Dosage: UNK

REACTIONS (10)
  - ABDOMINAL HERNIA [None]
  - ASTHMA [None]
  - CONGENITAL ANOMALY [None]
  - CRYPTORCHISM [None]
  - DRUG EXPOSURE DURING PREGNANCY [None]
  - HEART VALVE INCOMPETENCE [None]
  - HYPOSPADIAS [None]
  - NERVOUS SYSTEM DISORDER [None]
  - PILONIDAL CYST CONGENITAL [None]
  - VENTRICULAR SEPTAL DEFECT [None]
